FAERS Safety Report 18918612 (Version 2)
Quarter: 2021Q1

REPORT INFORMATION
  Report Type: Other
  Country: DE (occurrence: DE)
  Receive Date: 20210219
  Receipt Date: 20210317
  Transmission Date: 20210420
  Serious: Yes (Other)
  Sender: FDA-Public Use
  Company Number: DE-ROCHE-2397237

PATIENT
  Age: 40 Year
  Sex: Female

DRUGS (4)
  1. CAPECITABINE. [Suspect]
     Active Substance: CAPECITABINE
     Dosage: MOST RECENT DOSE OF CAPECITABINE PRIOR TO THE EVENT: 27/AUG/2019
     Route: 048
     Dates: start: 20190729
  2. GOSERELIN [Suspect]
     Active Substance: GOSERELIN
     Indication: BREAST CANCER
     Route: 065
     Dates: start: 20190705, end: 20191021
  3. CAPECITABINE. [Suspect]
     Active Substance: CAPECITABINE
     Route: 048
     Dates: start: 20190706
  4. CAPECITABINE. [Suspect]
     Active Substance: CAPECITABINE
     Indication: BREAST CANCER
     Dosage: PATIENT RECEIVED MOST RECENT DOSE (4450 MG) OF CAPECITABINE PRIOR TO AE ON: 21/JUL/2019
     Route: 048
     Dates: start: 20190708

REACTIONS (3)
  - Stomatitis [Recovering/Resolving]
  - Diarrhoea [Recovering/Resolving]
  - Cholestasis [Recovering/Resolving]

NARRATIVE: CASE EVENT DATE: 20190729
